FAERS Safety Report 10382427 (Version 1)
Quarter: 2014Q3

REPORT INFORMATION
  Report Type: Spontaneous
  Country: BR (occurrence: BR)
  Receive Date: 20140813
  Receipt Date: 20140813
  Transmission Date: 20150326
  Serious: Yes (Hospitalization, Other)
  Sender: FDA-Public Use
  Company Number: BR-ELI_LILLY_AND_COMPANY-BR201408000741

PATIENT
  Sex: Female
  Weight: 41.6 kg

DRUGS (7)
  1. AMLODIPIN                          /00972401/ [Concomitant]
     Active Substance: AMLODIPINE BESYLATE
     Dosage: UNK, UNKNOWN
     Route: 065
  2. B COMPLEX                          /00212701/ [Concomitant]
     Dosage: UNK, UNKNOWN
     Route: 065
  3. ATORVASTATIN [Concomitant]
     Active Substance: ATORVASTATIN
     Dosage: UNK, UNKNOWN
     Route: 065
  4. ATENSINA [Concomitant]
     Active Substance: CLONIDINE
     Dosage: 200 DF, UNKNOWN
     Route: 065
  5. OMEPRAZOL                          /00661201/ [Concomitant]
     Active Substance: OMEPRAZOLE
  6. HUMULIN N [Suspect]
     Active Substance: INSULIN HUMAN
     Indication: PRODUCT USED FOR UNKNOWN INDICATION
     Dosage: UNK, QD
     Route: 058
  7. VITAMIN C [Concomitant]
     Active Substance: ASCORBIC ACID
     Dosage: UNK, UNKNOWN
     Route: 065

REACTIONS (5)
  - Spinal fracture [Unknown]
  - Blood glucose abnormal [Unknown]
  - Anaemia [Unknown]
  - Plasma cell myeloma [Recovering/Resolving]
  - Renal disorder [Unknown]

NARRATIVE: CASE EVENT DATE: 2014
